FAERS Safety Report 10699806 (Version 2)
Quarter: 2015Q2

REPORT INFORMATION
  Report Type: Spontaneous
  Country: NO (occurrence: None)
  Receive Date: 20141222
  Receipt Date: 20150507
  Transmission Date: 20150821
  Serious: Yes (Other)
  Sender: FDA-Public Use
  Company Number: GAM-436-14-NO

PATIENT

DRUGS (1)
  1. OCTAGAM IMMUNE GLOBULIN (HUMAN) [Suspect]
     Active Substance: HUMAN IMMUNOGLOBULIN G
     Indication: PRODUCT USED FOR UNKNOWN INDICATION
     Dosage: NOT OTHERWISE SPECIFIED)
     Route: 042

REACTIONS (3)
  - Suspected transmission of an infectious agent via product [None]
  - Hepatitis B core antibody positive [None]
  - Hepatitis B surface antibody positive [None]
